FAERS Safety Report 8180860-1 (Version None)
Quarter: 2012Q1

REPORT INFORMATION
  Report Type: 
  Country: None (occurrence: None)
  Receive Date: 20120301
  Receipt Date: 20120301
  Transmission Date: 20120608
  Serious: Yes (Disabling)
  Sender: FDA-Public Use
  Company Number: None

PATIENT
  Age: 66 Year
  Sex: Female
  Weight: 65.7716 kg

DRUGS (7)
  1. METRONIDAZOLE [Suspect]
     Indication: CLOSTRIDIAL INFECTION
     Dosage: 1 TAB 3X DAILY TOTAL OF 411 TABS
     Dates: start: 20101231
  2. METRONIDAZOLE [Suspect]
     Indication: CLOSTRIDIAL INFECTION
     Dosage: 1 TAB 3X DAILY TOTAL OF 411 TABS
     Dates: start: 20110725
  3. METRONIDAZOLE [Suspect]
     Indication: CLOSTRIDIAL INFECTION
     Dosage: 1 TAB 3X DAILY TOTAL OF 411 TABS
     Dates: start: 20110814
  4. METRONIDAZOLE [Suspect]
     Indication: CLOSTRIDIAL INFECTION
     Dosage: 1 TAB 3X DAILY TOTAL OF 411 TABS
     Dates: start: 20111221
  5. METRONIDAZOLE [Suspect]
     Indication: CLOSTRIDIAL INFECTION
     Dosage: 1 TAB 3X DAILY TOTAL OF 411 TABS
     Dates: start: 20111119
  6. METRONIDAZOLE [Suspect]
     Indication: CLOSTRIDIAL INFECTION
     Dosage: 1 TAB 3X DAILY TOTAL OF 411 TABS
     Dates: start: 20110106
  7. METRONIDAZOLE [Suspect]
     Indication: CLOSTRIDIAL INFECTION
     Dosage: 1 TAB 3X DAILY TOTAL OF 411 TABS
     Dates: start: 20110903

REACTIONS (1)
  - NEUROPATHY PERIPHERAL [None]
